FAERS Safety Report 6302086-6 (Version None)
Quarter: 2009Q3

REPORT INFORMATION
  Report Type: 
  Country: None (occurrence: None)
  Receive Date: 20090807
  Receipt Date: 20090803
  Transmission Date: 20100115
  Serious: Yes (Other)
  Sender: FDA-Public Use
  Company Number: MX-ELI_LILLY_AND_COMPANY-MX200907002909

PATIENT
  Age: 83 Year
  Sex: Male
  Weight: 76 kg

DRUGS (7)
  1. HUMALOG MIX 75/25 [Suspect]
     Indication: DIABETES MELLITUS
     Dosage: 30 IU, EACH MORNING
     Route: 058
     Dates: start: 19990101
  2. HUMALOG MIX 75/25 [Suspect]
     Dosage: 20 IU, EACH EVENING
     Route: 058
  3. DIURETICS [Concomitant]
     Dosage: UNK, 2/D
     Route: 065
  4. MALIVAL AP [Concomitant]
     Dosage: UNK, UNKNOWN
     Route: 065
  5. NEURONTIN [Concomitant]
     Dosage: 400 MG, 2/D
     Route: 065
  6. MELOXICAM [Concomitant]
     Dosage: UNK, UNKNOWN
     Route: 065
  7. PRILOSEC [Concomitant]
     Dosage: 20 MG, UNKNOWN
     Route: 065

REACTIONS (4)
  - HYPERGLYCAEMIA [None]
  - INJECTION SITE HAEMATOMA [None]
  - MOVEMENT DISORDER [None]
  - POST PROCEDURAL COMPLICATION [None]
